FAERS Safety Report 7543039-X (Version None)
Quarter: 2011Q2

REPORT INFORMATION
  Report Type: 
  Country: None (occurrence: None)
  Receive Date: 20110613
  Receipt Date: 20110608
  Transmission Date: 20111010
  Serious: No
  Sender: FDA-Public Use
  Company Number: US-PFIZER INC-2011127632

PATIENT
  Sex: Female

DRUGS (3)
  1. GEODON [Suspect]
     Dosage: 10 MG, UNK
     Route: 048
  2. GEODON [Suspect]
     Dosage: 40 MG, UNK
     Route: 048
  3. GEODON [Suspect]
     Dosage: 20 MG, UNK
     Route: 048

REACTIONS (1)
  - HEADACHE [None]
